FAERS Safety Report 17658184 (Version 2)
Quarter: 2020Q2

REPORT INFORMATION
  Report Type: Report from Study
  Country: IE (occurrence: IE)
  Receive Date: 20200411
  Receipt Date: 20200414
  Transmission Date: 20200713
  Serious: Yes (Other)
  Sender: FDA-Public Use
  Company Number: NVSC2020IE097037

PATIENT
  Age: 58 Year
  Sex: Female

DRUGS (1)
  1. SANDOSTATIN LAR DEPOT [Suspect]
     Active Substance: OCTREOTIDE ACETATE
     Indication: NEUROENDOCRINE TUMOUR
     Dosage: 30 MG
     Route: 065

REACTIONS (8)
  - Blood pressure increased [Not Recovered/Not Resolved]
  - Dyspnoea exertional [Unknown]
  - Chest pain [Not Recovered/Not Resolved]
  - Cyst [Not Recovered/Not Resolved]
  - Aortic dissection [Recovered/Resolved]
  - Malaise [Not Recovered/Not Resolved]
  - Lymphadenopathy [Unknown]
  - Lung disorder [Unknown]

NARRATIVE: CASE EVENT DATE: 20020409
